FAERS Safety Report 4562267-9 (Version None)
Quarter: 2005Q1

REPORT INFORMATION
  Report Type: 
  Country: None (occurrence: None)
  Receive Date: 20050121
  Receipt Date: 20050113
  Transmission Date: 20050727
  Serious: Yes (Other)
  Sender: FDA-Public Use
  Company Number: HQWYE740729JUN04

PATIENT
  Age: 52 Year
  Sex: Female
  Weight: 70.37 kg

DRUGS (6)
  1. EFFEXOR XR [Suspect]
     Dosage: ^BEGAN BY USING A STARTER PACK WHICH STARTS AT A LOWER DOSE AND BUILDS TO FULL DOSE^, ORAL
     Route: 048
     Dates: start: 20040601, end: 20040708
  2. LIPITOR [Concomitant]
     Dosage: 04MG
  3. PREVACID [Concomitant]
  4. XANAX [Concomitant]
  5. DARVOCET-N 50 [Concomitant]
  6. BEXTRA [Concomitant]

REACTIONS (1)
  - DRUG HYPERSENSITIVITY [None]
